FAERS Safety Report 13605414 (Version 1)
Quarter: 2017Q2

REPORT INFORMATION
  Report Type: Spontaneous
  Country: US (occurrence: US)
  Receive Date: 20170602
  Receipt Date: 20170602
  Transmission Date: 20170830
  Serious: No
  Sender: FDA-Public Use
  Company Number: US-NOVEN PHARMACEUTICALS, INC.-US2016002171

PATIENT

DRUGS (3)
  1. DAYTRANA [Suspect]
     Active Substance: METHYLPHENIDATE
     Dosage: USING TWO 15 MG PATCHES TOGETHER FOR WEEKDAYS, UNKNOWN
     Route: 062
     Dates: start: 2015, end: 201608
  2. DAYTRANA [Suspect]
     Active Substance: METHYLPHENIDATE
     Indication: ATTENTION DEFICIT/HYPERACTIVITY DISORDER
     Dosage: 30MG FOR WEEKDAYS AND 15MG FOR WEEKENDS, UNKNOWN
     Route: 062
     Dates: start: 2013, end: 2015
  3. DAYTRANA [Suspect]
     Active Substance: METHYLPHENIDATE
     Dosage: 15 MG ON WEEKDAYS, UNK
     Route: 062
     Dates: start: 201608

REACTIONS (3)
  - Wrong technique in product usage process [Recovered/Resolved]
  - Off label use [Unknown]
  - No adverse event [Unknown]

NARRATIVE: CASE EVENT DATE: 2015
